FAERS Safety Report 23384434 (Version 1)
Quarter: 2024Q1

REPORT INFORMATION
  Report Type: Spontaneous
  Country: US (occurrence: US)
  Receive Date: 20240109
  Receipt Date: 20240109
  Transmission Date: 20240409
  Serious: No
  Sender: FDA-Public Use
  Company Number: US-PFIZER INC-202300455433

PATIENT
  Age: 92 Year
  Sex: Female

DRUGS (7)
  1. VYNDAMAX [Suspect]
     Active Substance: TAFAMIDIS
     Indication: Cardiac disorder
     Dosage: 1X/DAY
     Dates: end: 202311
  2. ELIQUIS [Concomitant]
     Active Substance: APIXABAN
     Indication: Atrial fibrillation
     Dosage: 5 MG
  3. WARFARIN [Concomitant]
     Active Substance: WARFARIN
     Indication: Atrial fibrillation
     Dosage: UNK
  4. LASIX [Concomitant]
     Active Substance: FUROSEMIDE
     Indication: Fluid imbalance
     Dosage: ONCE A DAY OR TWICE A DAY
  5. LASIX [Concomitant]
     Active Substance: FUROSEMIDE
     Dosage: AT LEAST TWICE A DAY
  6. POTASSIUM [Concomitant]
     Active Substance: POTASSIUM
     Indication: Fluid imbalance
     Dosage: KNOWS WAS TAKING EACH ONE OF THOSE AT LEAST ONCE A DAY
  7. ASPIRIN [Concomitant]
     Active Substance: ASPIRIN
     Dosage: LOW DOSE
     Dates: start: 202312

REACTIONS (1)
  - Weight decreased [Unknown]
